FAERS Safety Report 5211545-9 (Version None)
Quarter: 2007Q1

REPORT INFORMATION
  Report Type: 
  Country: None (occurrence: None)
  Receive Date: 20070117
  Receipt Date: 20070116
  Transmission Date: 20070707
  Serious: Yes (Death)
  Sender: FDA-Public Use
  Company Number: JP-SANOFI-SYNTHELABO-F01200601615

PATIENT
  Age: 66 Year
  Sex: Female
  Weight: 53 kg

DRUGS (3)
  1. LEUCOVORIN CALCIUM [Suspect]
     Route: 042
     Dates: start: 20060320, end: 20060320
  2. FLUOROURACIL [Suspect]
     Dosage: 550 MG/BODY=390.1 MG/M2 IN BOLUS THEN 3300 MG/BODY=2340 MG/M2 AS INFUSION
     Route: 042
     Dates: start: 20060320, end: 20060320
  3. OXALIPLATIN [Suspect]
     Indication: COLON CANCER
     Route: 042
     Dates: start: 20060320, end: 20060320

REACTIONS (1)
  - LEUKOPENIA [None]
